FAERS Safety Report 7464871-7 (Version None)
Quarter: 2011Q2

REPORT INFORMATION
  Report Type: 
  Country: None (occurrence: None)
  Receive Date: 20110509
  Receipt Date: 20110331
  Transmission Date: 20111010
  Serious: Yes (Hospitalization, Other)
  Sender: FDA-Public Use
  Company Number: US-BAYER-201018993NA

PATIENT
  Age: 29 Year
  Sex: Female
  Weight: 63.492 kg

DRUGS (8)
  1. XANAX [Concomitant]
     Indication: ANXIETY
     Dosage: UNK
     Dates: start: 19980101
  2. LEXAPRO [Concomitant]
     Indication: DEPRESSION
  3. IBUPROFEN [Concomitant]
     Indication: HEADACHE
     Dosage: UNK UNK, OW
  4. YAZ [Suspect]
     Indication: CONTRACEPTION
     Dosage: 1 DF, QD
     Route: 048
     Dates: start: 20060901, end: 20091001
  5. PAXIL [Concomitant]
     Indication: DEPRESSION
  6. LEXAPRO [Concomitant]
     Indication: ANXIETY
     Dosage: UNK
     Dates: start: 19980101
  7. YASMIN [Suspect]
     Indication: PRODUCT USED FOR UNKNOWN INDICATION
  8. PAXIL [Concomitant]
     Indication: ANXIETY
     Dosage: UNK
     Dates: start: 19970101

REACTIONS (6)
  - STRESS [None]
  - BILIARY COLIC [None]
  - APHAGIA [None]
  - NAUSEA [None]
  - CHOLECYSTECTOMY [None]
  - CHOLECYSTITIS CHRONIC [None]
